FAERS Safety Report 9571135 (Version 1)
Quarter: 2013Q3

REPORT INFORMATION
  Report Type: Spontaneous
  Country: US (occurrence: None)
  Receive Date: 20130927
  Receipt Date: 20130927
  Transmission Date: 20140515
  Serious: No
  Sender: FDA-Public Use
  Company Number: None

PATIENT
  Age: 66 Year
  Sex: Male
  Weight: 86.8 kg

DRUGS (2)
  1. ROSUVASTATIN [Suspect]
     Route: 048
     Dates: start: 20120830, end: 20130923
  2. CIPROFLOXACIN [Suspect]
     Route: 048
     Dates: start: 20130521, end: 20130529

REACTIONS (1)
  - Suicidal ideation [None]
